FAERS Safety Report 8461577 (Version 3)
Quarter: 2014Q2

REPORT INFORMATION
  Report Type: Spontaneous
  Country: US (occurrence: US)
  Receive Date: 20120315
  Receipt Date: 20130810
  Transmission Date: 20141212
  Serious: Yes (Death)
  Sender: FDA-Public Use
  Company Number: US-BAXTER-2012BH007200

PATIENT
  Sex: Male

DRUGS (4)
  1. DIANEAL_1.5% PD4_SOLUTION FOR PERITONEAL DIALYSIS_BAG, PVC [Suspect]
     Indication: PERITONEAL DIALYSIS
     Route: 033
     Dates: end: 20120310
  2. DIANEAL_2.5% PD4_SOLUTION FOR PERITONEAL DIALYSIS_BAG, PVC [Suspect]
     Indication: PERITONEAL DIALYSIS
     Route: 033
     Dates: end: 20120310
  3. DIANEAL LOW CALCIUM (ULTRABAG) [Suspect]
     Indication: PERITONEAL DIALYSIS
     Route: 033
  4. DIANEAL LOW CALCIUM [Suspect]
     Indication: PERITONEAL DIALYSIS
     Route: 033

REACTIONS (1)
  - Gastrointestinal haemorrhage [Fatal]
